FAERS Safety Report 6905798-6 (Version None)
Quarter: 2010Q3

REPORT INFORMATION
  Report Type: 
  Country: None (occurrence: None)
  Receive Date: 20100804
  Receipt Date: 20070112
  Transmission Date: 20110219
  Serious: Yes (Hospitalization)
  Sender: FDA-Public Use
  Company Number: IN-ROCHE-478308

PATIENT
  Sex: Female

DRUGS (7)
  1. TRASTUZUMAB [Suspect]
     Dosage: LOADING DOSE 4MG/KG OR 8MG/KG
     Route: 042
     Dates: start: 20060905
  2. TRASTUZUMAB [Suspect]
     Dosage: MAINTENANCE DOSE
     Route: 042
     Dates: start: 20060926, end: 20061206
  3. TRASTUZUMAB [Suspect]
     Dosage: MAINTENANCE DOSE
     Route: 042
     Dates: start: 20061220
  4. MYOCET [Suspect]
     Route: 042
     Dates: start: 20060905, end: 20061206
  5. MYOCET [Suspect]
     Route: 042
     Dates: start: 20061220
  6. PACLITAXEL [Suspect]
     Route: 042
     Dates: start: 20060905, end: 20061206
  7. PACLITAXEL [Suspect]
     Route: 042
     Dates: start: 20061220

REACTIONS (2)
  - PYREXIA [None]
  - STOMATITIS [None]
